FAERS Safety Report 20634918 (Version 3)
Quarter: 2022Q2

REPORT INFORMATION
  Report Type: Spontaneous
  Country: BB (occurrence: BB)
  Receive Date: 20220325
  Receipt Date: 20220412
  Transmission Date: 20220721
  Serious: Yes (Other)
  Sender: FDA-Public Use
  Company Number: BB-BoehringerIngelheim-2022-BI-161391

PATIENT
  Sex: Female

DRUGS (1)
  1. PRADAXA [Suspect]
     Active Substance: DABIGATRAN ETEXILATE MESYLATE
     Indication: Deep vein thrombosis

REACTIONS (1)
  - Deep vein thrombosis [Unknown]
